FAERS Safety Report 9538798 (Version 2)
Quarter: 2013Q3

REPORT INFORMATION
  Report Type: Spontaneous
  Country: GB (occurrence: GB)
  Receive Date: 20130920
  Receipt Date: 20130920
  Transmission Date: 20140515
  Serious: Yes (Other)
  Sender: FDA-Public Use
  Company Number: PHFR2013GB003759

PATIENT
  Age: 20 Year
  Sex: Male

DRUGS (3)
  1. CLOZARIL [Suspect]
     Indication: SCHIZOPHRENIA
     Dosage: UNK
     Route: 048
     Dates: start: 20130617
  2. CLOZARIL [Suspect]
     Dosage: 12.5 MG,
     Route: 048
     Dates: start: 20130702
  3. OLANZAPIN [Concomitant]
     Dosage: UNK

REACTIONS (4)
  - Vision blurred [Recovering/Resolving]
  - Hepatic enzyme increased [Recovering/Resolving]
  - Alanine aminotransferase increased [Recovering/Resolving]
  - Salivary hypersecretion [Recovering/Resolving]
